FAERS Safety Report 23667526 (Version 1)
Quarter: 2024Q1

REPORT INFORMATION
  Report Type: Other
  Country: CO (occurrence: None)
  Receive Date: 20240325
  Receipt Date: 20240325
  Transmission Date: 20240410
  Serious: Yes (Other)
  Sender: FDA-Public Use
  Company Number: CO-ROCHE-3530349

PATIENT
  Age: 51 Year
  Sex: Male

DRUGS (1)
  1. OCREVUS [Suspect]
     Active Substance: OCRELIZUMAB
     Indication: Primary progressive multiple sclerosis
     Dosage: DOSE AND FREQUENCY WERE NOT REPORTED
     Route: 065

REACTIONS (6)
  - Viral infection [Unknown]
  - Diarrhoea [Unknown]
  - Discomfort [Unknown]
  - Influenza [Unknown]
  - Hypokinesia [Unknown]
  - Hemiparesis [Unknown]
